FAERS Safety Report 16373134 (Version 1)
Quarter: 2019Q2

REPORT INFORMATION
  Report Type: Spontaneous
  Country: US (occurrence: US)
  Receive Date: 20190530
  Receipt Date: 20190530
  Transmission Date: 20190711
  Serious: No
  Sender: FDA-Public Use
  Company Number: US-PFIZER INC-2016440483

PATIENT
  Age: 64 Year
  Sex: Male
  Weight: 151.9 kg

DRUGS (25)
  1. TERBINAFINE. [Concomitant]
     Active Substance: TERBINAFINE
     Dosage: UNK UNK, 2X/DAY
     Route: 061
     Dates: start: 20141105
  2. HYDROCHLOROTHIAZIDE -TRIAMTERENE [Concomitant]
     Dosage: [HYDROCHLOROTHIAZIDE: 50MG/TRIAMTERENE: 75 MG], 1X/DAY
     Route: 048
     Dates: start: 20160712
  3. SENNA [Concomitant]
     Active Substance: SENNA LEAF\SENNOSIDES\SENNOSIDES A AND B
     Dosage: 17.2 MG, 1X/DAY (AT BEDTIME) PRN
     Route: 048
     Dates: start: 20160519
  4. TRAZODONE [Concomitant]
     Active Substance: TRAZODONE HYDROCHLORIDE
     Dosage: 100 MG, AS NEEDED (EVERY BEDTIME)
     Route: 048
     Dates: start: 20120823
  5. SIMVASTATIN. [Concomitant]
     Active Substance: SIMVASTATIN
     Dosage: 5 MG, 1X/DAY (AT BEDTIME)
     Route: 048
  6. LYRICA [Suspect]
     Active Substance: PREGABALIN
     Indication: NEUROPATHY PERIPHERAL
     Dosage: 150 MG, THREE TIMES A DAY
     Route: 048
  7. BUSPIRONE HYDROCHLORIDE. [Concomitant]
     Active Substance: BUSPIRONE HYDROCHLORIDE
     Dosage: 15 MG, 2X/DAY
     Route: 048
     Dates: start: 20110525
  8. ASPIRIN. [Concomitant]
     Active Substance: ASPIRIN
     Dosage: 81 MG, 1X/DAY
     Route: 048
  9. LANTUS [Concomitant]
     Active Substance: INSULIN GLARGINE
     Dosage: 96 IU, 2X/DAY
  10. COZAAR [Concomitant]
     Active Substance: LOSARTAN POTASSIUM
     Dosage: 100 MG, 1X/DAY
     Route: 048
  11. K-TAB [Concomitant]
     Active Substance: POTASSIUM CHLORIDE
     Dosage: 10 MEQ, AS NEEDED (WITH LASIX)
     Route: 048
  12. INSULIN [Concomitant]
     Active Substance: INSULIN NOS
     Dosage: 31 G, AS NEEDED
     Dates: start: 20160526
  13. ACETAMINOPHEN W/HYDROCODONE BITARTRATE [Concomitant]
     Active Substance: ACETAMINOPHEN\HYDROCODONE BITARTRATE
     Dosage: [ACETAMINOPHEN: 325 MG/HYDROCODONE BITARTRATE: 10 MG], AS NEEDED (EVERY 6 HOURS)
     Route: 048
     Dates: start: 20150603
  14. MIRALAX [Concomitant]
     Active Substance: POLYETHYLENE GLYCOL 3350
     Dosage: 17 G, 1X/DAY
     Route: 048
     Dates: start: 20130214
  15. OXYGEN. [Concomitant]
     Active Substance: OXYGEN
     Dosage: UNK (2 LITERS)
     Dates: start: 20140605
  16. CYMBALTA [Concomitant]
     Active Substance: DULOXETINE HYDROCHLORIDE
     Dosage: 60 MG, 1X/DAY
     Route: 048
     Dates: start: 20100113
  17. MS CONTIN [Concomitant]
     Active Substance: MORPHINE SULFATE
     Dosage: 60 MG, 2X/DAY (EVERY 12 HOURS)
     Dates: start: 20160727
  18. FLUCONAZOLE. [Concomitant]
     Active Substance: FLUCONAZOLE
     Dosage: 150 MG, WEEKLY  (ONCE A WEEK FOR 4 WEEKS)
     Route: 048
     Dates: start: 20141203
  19. SYNTHROID [Concomitant]
     Active Substance: LEVOTHYROXINE SODIUM
     Dosage: 88 UG, DAILY (1 TABLET)
     Route: 048
  20. LYRICA [Suspect]
     Active Substance: PREGABALIN
     Indication: POLYNEUROPATHY
     Dosage: 200 MG, THREE TIMES A DAY
     Route: 048
  21. COREG [Concomitant]
     Active Substance: CARVEDILOL
     Dosage: 25 MG, 2X/DAY
     Route: 048
  22. METFORMIN [Concomitant]
     Active Substance: METFORMIN HYDROCHLORIDE
     Dosage: 850 MG, UNK (WITH EACH MEAL)
     Route: 048
  23. LASIX [Concomitant]
     Active Substance: FUROSEMIDE
     Dosage: 20 MG, 2X/DAY
     Route: 048
  24. NATEGLINIDE. [Concomitant]
     Active Substance: NATEGLINIDE
     Dosage: 120 MG, 3X/DAY (BEFORE MEALS)
     Route: 048
     Dates: start: 20150606
  25. MORPHINE SULFATE. [Concomitant]
     Active Substance: MORPHINE SULFATE
     Dosage: 15 MG, AS NEEDED (EVERY 6 HOURS)
     Dates: start: 20160615

REACTIONS (6)
  - Intentional product misuse [Unknown]
  - Withdrawal syndrome [Unknown]
  - Abdominal pain upper [Recovering/Resolving]
  - Palpitations [Unknown]
  - Nausea [Unknown]
  - Heart rate increased [Recovered/Resolved]

NARRATIVE: CASE EVENT DATE: 20190520
